FAERS Safety Report 4426433-5 (Version None)
Quarter: 2004Q3

REPORT INFORMATION
  Report Type: 
  Country: None (occurrence: None)
  Receive Date: 20040811
  Receipt Date: 20040728
  Transmission Date: 20050211
  Serious: Yes (Hospitalization, Other)
  Sender: FDA-Public Use
  Company Number: GBS040715177

PATIENT
  Age: 79 Year
  Sex: Female
  Weight: 68 kg

DRUGS (10)
  1. EVISTA [Suspect]
     Indication: OSTEOPOROSIS
     Dosage: 60 MG DAY
     Dates: start: 19991122, end: 20030610
  2. CO-CARELDOPA [Concomitant]
  3. QUININE [Concomitant]
  4. ACETAMINOPHEN [Concomitant]
  5. CO-DYDRAMOL [Concomitant]
  6. ALENDRONATE SODIUM [Concomitant]
  7. ASPIRIN [Concomitant]
  8. ADIZEM XL (DILTIAZEM HYDROCHLORIDE) [Concomitant]
  9. SIMVASTATIN [Concomitant]
  10. LEVOTHYROXINE SODIUM [Concomitant]

REACTIONS (1)
  - BREAST CANCER [None]
